FAERS Safety Report 6193845-1 (Version None)
Quarter: 2009Q2

REPORT INFORMATION
  Report Type: 
  Country: None (occurrence: None)
  Receive Date: 20090518
  Receipt Date: 20090506
  Transmission Date: 20091009
  Serious: Yes (Other)
  Sender: FDA-Public Use
  Company Number: UY-PFIZER INC-2009199487

PATIENT
  Age: 55 Year

DRUGS (1)
  1. SUTENT [Suspect]
     Dosage: 50 MG, UNK
     Dates: start: 20090114

REACTIONS (5)
  - EAR DISCOMFORT [None]
  - EYE SWELLING [None]
  - HYPOACUSIS [None]
  - POSTURE ABNORMAL [None]
  - TINNITUS [None]
